FAERS Safety Report 11016416 (Version 2)
Quarter: 2015Q2

REPORT INFORMATION
  Report Type: Spontaneous
  Country: US (occurrence: US)
  Receive Date: 20150412
  Receipt Date: 20150525
  Transmission Date: 20150821
  Serious: No
  Sender: FDA-Public Use
  Company Number: US-JNJFOC-20130702351

PATIENT
  Age: 38 Year
  Sex: Female

DRUGS (5)
  1. SIMPONI [Suspect]
     Active Substance: GOLIMUMAB
     Indication: RHEUMATOID ARTHRITIS
     Route: 058
     Dates: start: 2011
  2. VITAMIN D [Concomitant]
     Active Substance: CHOLECALCIFEROL
     Route: 048
     Dates: start: 201306
  3. FISH OIL [Concomitant]
     Active Substance: FISH OIL
     Route: 048
     Dates: start: 2008
  4. METHOTREXATE [Concomitant]
     Active Substance: METHOTREXATE
     Route: 048
     Dates: start: 2008
  5. FOLIC ACID. [Concomitant]
     Active Substance: FOLIC ACID
     Route: 048
     Dates: start: 2008

REACTIONS (2)
  - Drug dose omission [Not Recovered/Not Resolved]
  - Device malfunction [Not Recovered/Not Resolved]

NARRATIVE: CASE EVENT DATE: 20130703
